FAERS Safety Report 14690822 (Version 1)
Quarter: 2018Q1

REPORT INFORMATION
  Report Type: Other
  Country: RO (occurrence: RO)
  Receive Date: 20180328
  Receipt Date: 20180328
  Transmission Date: 20180509
  Serious: No
  Sender: FDA-Public Use
  Company Number: RO-LEADING PHARMA-2044715

PATIENT
  Age: 73 Year
  Sex: Male

DRUGS (1)
  1. FUROSEMIDE TABLETS , 20 MG, 40 MG AND 80 MG [Suspect]
     Active Substance: FUROSEMIDE
     Indication: DIURETIC THERAPY

REACTIONS (1)
  - Gynaecomastia [Unknown]
